FAERS Safety Report 9645756 (Version 5)
Quarter: 2014Q3

REPORT INFORMATION
  Report Type: Spontaneous
  Country: US (occurrence: None)
  Receive Date: 20131023
  Receipt Date: 20140729
  Transmission Date: 20150326
  Serious: Yes (Other)
  Sender: FDA-Public Use
  Company Number: 2013-US-001933

PATIENT
  Age: 45 Year
  Sex: Female
  Weight: 53.5 kg

DRUGS (11)
  1. XOPENEX (LEVOSALBUTAMOL HYDROCHLORIDE) INHALER [Concomitant]
  2. CARBAMAZEPINE (CARBAMAZEPINE) [Concomitant]
     Active Substance: CARBAMAZEPINE
  3. METHYLPHENIDATE (METHYLPHENIDATE HYDROCHLORIDE) [Concomitant]
  4. ARAVA [Suspect]
     Active Substance: LEFLUNOMIDE
     Indication: AUTOINFLAMMATORY DISEASE
     Route: 048
  5. DHEA (PRASTERONE) [Concomitant]
  6. XOLAIR [Concomitant]
     Active Substance: OMALIZUMAB
  7. XYREM [Suspect]
     Active Substance: SODIUM OXYBATE
     Indication: CATAPLEXY
     Route: 048
     Dates: start: 201011, end: 201011
  8. SULFASALAZINE (SULFASALAZINE) [Suspect]
     Active Substance: SULFASALAZINE
     Indication: PRODUCT USED FOR UNKNOWN INDICATION
  9. TOPROL (METOPROLOL SUCCINATE) [Concomitant]
  10. ADVAIR DISKUS [Concomitant]
     Active Substance: FLUTICASONE PROPIONATE\SALMETEROL XINAFOATE
  11. XYREM [Suspect]
     Active Substance: SODIUM OXYBATE
     Indication: NARCOLEPSY
     Route: 048
     Dates: start: 201011, end: 201011

REACTIONS (14)
  - Lung infection [None]
  - Chest pain [None]
  - Hepatic enzyme increased [None]
  - Bronchoscopy [None]
  - Oxygen saturation decreased [None]
  - Herpes zoster [None]
  - Hypoxia [None]
  - Catheterisation cardiac [None]
  - Immunosuppression [None]
  - Tracheal inflammation [None]
  - Oesophageal operation [None]
  - Stress [None]
  - Hypertension [None]
  - Gastrooesophageal reflux disease [None]

NARRATIVE: CASE EVENT DATE: 201305
